FAERS Safety Report 23023517 (Version 2)
Quarter: 2023Q4

REPORT INFORMATION
  Report Type: Spontaneous
  Country: US (occurrence: US)
  Receive Date: 20231003
  Receipt Date: 20231025
  Transmission Date: 20240109
  Serious: Yes (Hospitalization)
  Sender: FDA-Public Use
  Company Number: US-PFIZER INC-PV202300160588

PATIENT
  Age: 25 Year
  Sex: Female
  Weight: 74.195 kg

DRUGS (9)
  1. SOLU-MEDROL [Suspect]
     Active Substance: METHYLPREDNISOLONE SODIUM SUCCINATE
     Indication: Premedication
     Dosage: 125 MG
     Dates: start: 20230609, end: 20230609
  2. BRIUMVI [Suspect]
     Active Substance: UBLITUXIMAB-XIIY
     Indication: Multiple sclerosis
     Dosage: 150 MG (EVERY 6 MONTHS FROM 09JUN2023)
     Route: 042
     Dates: start: 20230609, end: 20230609
  3. BRIUMVI [Suspect]
     Active Substance: UBLITUXIMAB-XIIY
     Dosage: 450 MG, CYCLIC (EVERY 6 MONTH)
     Dates: start: 20230623
  4. KYLEENA [Concomitant]
     Active Substance: LEVONORGESTREL
     Dosage: UNK
  5. SUMATRIPTAN [Concomitant]
     Active Substance: SUMATRIPTAN
     Dosage: UNK
  6. QULIPTA [Concomitant]
     Active Substance: ATOGEPANT
     Dosage: UNK
  7. BENADRYL [Concomitant]
     Active Substance: DIPHENHYDRAMINE HYDROCHLORIDE
     Dosage: 25 MG
     Route: 042
  8. TYLENOL [Concomitant]
     Active Substance: ACETAMINOPHEN
     Dosage: 1000 MG
     Route: 048
  9. IBUPROFEN [Concomitant]
     Active Substance: IBUPROFEN
     Indication: Cluster headache
     Dosage: 600 MG

REACTIONS (4)
  - Infusion related reaction [Recovered/Resolved]
  - Heart rate increased [Recovered/Resolved]
  - Palpitations [Recovered/Resolved]
  - Headache [Recovered/Resolved]
